FAERS Safety Report 8213429-0 (Version None)
Quarter: 2012Q1

REPORT INFORMATION
  Report Type: 
  Country: None (occurrence: None)
  Receive Date: 20120315
  Receipt Date: 20120307
  Transmission Date: 20120608
  Serious: Yes (Other)
  Sender: FDA-Public Use
  Company Number: US-ROCHE-782751

PATIENT
  Sex: Male
  Weight: 63.56 kg

DRUGS (4)
  1. ACCUTANE [Suspect]
     Indication: ACNE
     Route: 065
     Dates: start: 19991118, end: 20000501
  2. AMNESTEEM [Suspect]
     Indication: ACNE
     Route: 065
     Dates: start: 20061001, end: 20061101
  3. ACCUTANE [Suspect]
     Indication: FOLLICULITIS
     Dates: start: 20060919, end: 20061101
  4. CLARAVIS [Suspect]
     Indication: ACNE
     Route: 048
     Dates: start: 20061001, end: 20061101

REACTIONS (7)
  - IRRITABLE BOWEL SYNDROME [None]
  - COLITIS ULCERATIVE [None]
  - DEPRESSION [None]
  - LIP DRY [None]
  - ANXIETY [None]
  - INFLAMMATORY BOWEL DISEASE [None]
  - EMOTIONAL DISTRESS [None]
